FAERS Safety Report 7469106-7 (Version None)
Quarter: 2011Q2

REPORT INFORMATION
  Report Type: 
  Country: None (occurrence: None)
  Receive Date: 20110510
  Receipt Date: 20110426
  Transmission Date: 20111010
  Serious: Yes (Death)
  Sender: FDA-Public Use
  Company Number: JP-ELI_LILLY_AND_COMPANY-JP201104005371

PATIENT
  Age: 65 Year
  Sex: Male

DRUGS (2)
  1. DIURETICS [Concomitant]
     Indication: CARDIAC FAILURE
     Dosage: UNK
     Dates: end: 20110417
  2. ZYPREXA [Suspect]
     Indication: SCHIZOPHRENIA
     Dosage: 10 MG, UNK
     Route: 048
     Dates: start: 20101001, end: 20110417

REACTIONS (1)
  - CARDIAC FAILURE [None]
